FAERS Safety Report 9855118 (Version 1)
Quarter: 2013Q4

REPORT INFORMATION
  Report Type: Spontaneous
  Country: US (occurrence: None)
  Receive Date: 20131226
  Receipt Date: 20131226
  Transmission Date: 20140711
  Serious: Yes (Other)
  Sender: FDA-Public Use
  Company Number: PHEH2012US007974

PATIENT
  Age: 17 Year
  Sex: Female

DRUGS (8)
  1. AFINITOR [Suspect]
     Indication: ASTROCYTOMA, LOW GRADE
     Dosage: UNK UKN, ORAL
     Route: 048
     Dates: start: 20120309
  2. CARBATROL (CARBAMAZEPINE) [Concomitant]
  3. VITAMIN C (ASCORBIC ACID) [Concomitant]
  4. RISPERDAL (RISPERIDONE) [Concomitant]
  5. METFORMIN (METFORMIN) [Concomitant]
  6. STRESS B COMPLEX (MINERALS NOS, VITMINS NOS) [Concomitant]
  7. NASONEX (MOMETASONE FUROATE) [Concomitant]
  8. SEOQUEL (QUETIAPINE FUMARATE) [Concomitant]

REACTIONS (4)
  - Blood triglycerides increased [None]
  - Stomatitis [None]
  - Acne [None]
  - Lip pain [None]
